FAERS Safety Report 8542921-4 (Version None)
Quarter: 2012Q3

REPORT INFORMATION
  Report Type: 
  Country: None (occurrence: None)
  Receive Date: 20120716
  Receipt Date: 20120628
  Transmission Date: 20120928
  Serious: Yes (Life-Threatening, Other)
  Sender: FDA-Public Use
  Company Number: 2011MA007907

PATIENT
  Sex: Female

DRUGS (28)
  1. LORAZEPAM [Concomitant]
  2. OMEPRAZOLE [Concomitant]
  3. OXYCODONE HCL AND ACETAMINOPHEN [Concomitant]
  4. TRAZODONE HYDROCHLORIDE [Concomitant]
  5. ATIVAN [Concomitant]
  6. METOPROLOL TARTRATE [Concomitant]
  7. PANTOPRAZOLE [Concomitant]
  8. SERTRALINE HYDROCHLORIDE [Concomitant]
  9. XANAX [Concomitant]
  10. ASPIRIN [Concomitant]
  11. DILTIAZEM [Concomitant]
  12. PERCOCET [Concomitant]
  13. PROMETHAZINE [Concomitant]
  14. TOPAMAX [Concomitant]
  15. ULTRAM [Concomitant]
  16. MIRAPEX [Concomitant]
  17. NEURONTIN [Concomitant]
  18. RESTORIL [Concomitant]
  19. WARFARIN [Concomitant]
  20. ZOLOFT [Concomitant]
  21. METOCLOPRAMIDE [Suspect]
     Indication: NAUSEA
     Dosage: 10 MG; TID AC; PO
     Route: 048
     Dates: start: 20090823, end: 20090901
  22. LUNESTA [Concomitant]
  23. MEGESTROL ACETATE [Concomitant]
  24. VICODIN [Concomitant]
  25. ALPRAZOLAM [Concomitant]
  26. AMIODARONE HCL [Concomitant]
  27. POTASSIUM [Concomitant]
  28. PREDNISONE [Concomitant]

REACTIONS (18)
  - TARDIVE DYSKINESIA [None]
  - MIGRAINE [None]
  - ANXIETY [None]
  - HEADACHE [None]
  - RESPIRATORY FAILURE [None]
  - HYPERTENSION [None]
  - MITRAL VALVE REPAIR [None]
  - DYSKINESIA [None]
  - CONVULSION [None]
  - SPEECH DISORDER [None]
  - MOVEMENT DISORDER [None]
  - PANIC ATTACK [None]
  - DYSARTHRIA [None]
  - CARDIAC FAILURE [None]
  - EXTRAPYRAMIDAL DISORDER [None]
  - ECONOMIC PROBLEM [None]
  - DEPRESSION [None]
  - TREMOR [None]
